FAERS Safety Report 25374071 (Version 2)
Quarter: 2025Q2

REPORT INFORMATION
  Report Type: Spontaneous
  Country: KR (occurrence: KR)
  Receive Date: 20250529
  Receipt Date: 20250616
  Transmission Date: 20250717
  Serious: Yes (Hospitalization, Other)
  Sender: PFIZER
  Company Number: KR-PFIZER INC-PV202500062322

PATIENT
  Age: 83 Year
  Sex: Female
  Weight: 48 kg

DRUGS (9)
  1. LORLATINIB [Suspect]
     Active Substance: LORLATINIB
     Indication: Lung neoplasm malignant
     Dosage: 50 MG, 1X/DAY(IMMEDIATELY AFTER BREAKFAST)
     Route: 048
     Dates: start: 202412
  2. ALGIN N [Concomitant]
     Dosage: 20 ML, 3X/DAY ( PACKAGE (20ML) 3X DAILY 30 MINS BEFORE EACH MEAL)
     Route: 048
  3. NEBIVOLOL HYDROCHLORIDE [Concomitant]
     Active Substance: NEBIVOLOL HYDROCHLORIDE
     Dosage: 2.5 MG, 1X/DAY(IMMEDIATELY AFTER BREAKFAST)
     Route: 048
  4. MEMANTINE HYDROCHLORIDE [Concomitant]
     Active Substance: MEMANTINE HYDROCHLORIDE
     Dosage: 10 MG, 2X/DAY(IMMEDIATELY AFTE BREAKFAST AND DINNER)
     Route: 048
  5. QUETIAPINE FUMARATE [Concomitant]
     Active Substance: QUETIAPINE FUMARATE
     Dosage: 12.5 MG, 1X/DAY(BEFORE SLEEP)
     Route: 048
  6. ENCOVER [Concomitant]
     Dosage: 400 ML, 4X/DAY VIA L-TUBE
  7. DIETARY SUPPLEMENT\HERBALS\MILK THISTLE [Concomitant]
     Active Substance: MILK THISTLE
     Dosage: 1 DF, 3X/DAY(IMMEDIATELY AFTER EACH MEAL)
     Route: 048
  8. MYPOL [CODEINE PHOSPHATE;IBUPROFEN;PARACETAMOL] [Concomitant]
     Dosage: 1 DF, 3X/DAY(IMMEDIATELY AFTER EACH MEAL)
     Route: 048
  9. MAGNESIUM HYDROXIDE [Concomitant]
     Active Substance: MAGNESIUM HYDROXIDE
     Dosage: 500 MG, 3X/DAY(IMMEDIATELY AFTER EACH MEAL)
     Route: 048

REACTIONS (4)
  - Pneumonia [Not Recovered/Not Resolved]
  - Dysphagia [Unknown]
  - Choking [Unknown]
  - Foreign body in throat [Unknown]

NARRATIVE: CASE EVENT DATE: 20250101
